FAERS Safety Report 25372737 (Version 1)
Quarter: 2025Q2

REPORT INFORMATION
  Report Type: Spontaneous
  Country: CH (occurrence: CH)
  Receive Date: 20250529
  Receipt Date: 20250529
  Transmission Date: 20250717
  Serious: Yes (Other)
  Sender: AMGEN
  Company Number: CH-AMGEN-CHESP2025099833

PATIENT

DRUGS (1)
  1. PROLIA [Suspect]
     Active Substance: DENOSUMAB
     Indication: Osteoporosis
     Route: 058

REACTIONS (23)
  - Rhabdomyolysis [Unknown]
  - Neutropenia [Unknown]
  - COVID-19 [Unknown]
  - Toothache [Unknown]
  - Blood creatine phosphokinase increased [Unknown]
  - Vitamin D deficiency [Unknown]
  - Drug specific antibody [Unknown]
  - Infestation [Unknown]
  - Connective tissue disorder [Unknown]
  - Musculoskeletal disorder [Unknown]
  - Gastrointestinal disorder [Unknown]
  - Investigation abnormal [Unknown]
  - Metabolic disorder [Unknown]
  - Blood disorder [Unknown]
  - Lymphatic disorder [Unknown]
  - Injection site pain [Unknown]
  - Headache [Unknown]
  - Influenza like illness [Unknown]
  - Infection [Unknown]
  - Arthralgia [Unknown]
  - Upper respiratory tract infection [Unknown]
  - Pain in extremity [Unknown]
  - Drug hypersensitivity [Unknown]
